FAERS Safety Report 16779909 (Version 1)
Quarter: 2019Q3

REPORT INFORMATION
  Report Type: Spontaneous
  Country: US (occurrence: US)
  Receive Date: 20190717
  Receipt Date: 20190717
  Transmission Date: 20191005
  Serious: Yes (Other)
  Sender: FDA-Public Use
  Company Number: None

PATIENT
  Age: 64 Year
  Sex: Female
  Weight: 56.25 kg

DRUGS (2)
  1. JYNARQUE [Suspect]
     Active Substance: TOLVAPTAN
     Route: 048
     Dates: start: 20190320
  2. JYNARQUE [Suspect]
     Active Substance: TOLVAPTAN
     Indication: CONGENITAL CYSTIC KIDNEY DISEASE
     Dosage: ?          OTHER FREQUENCY:IN AM;?
     Route: 048
     Dates: start: 20190320

REACTIONS (2)
  - Therapy cessation [None]
  - Liver function test increased [None]
